FAERS Safety Report 17883600 (Version 1)
Quarter: 2020Q2

REPORT INFORMATION
  Report Type: Spontaneous
  Country: ES (occurrence: ES)
  Receive Date: 20200611
  Receipt Date: 20200611
  Transmission Date: 20200714
  Serious: Yes (Death)
  Sender: FDA-Public Use
  Company Number: ES-TEVA-2020-ES-1246774

PATIENT
  Age: 73 Year
  Sex: Female

DRUGS (9)
  1. METAMIZOL (111A) [Suspect]
     Active Substance: METAMIZOL SODIUM
     Indication: PAIN
     Dosage: 1 GRAM
     Route: 042
     Dates: start: 20200323, end: 20200327
  2. PARACETAMOL (12A) [Concomitant]
     Active Substance: ACETAMINOPHEN
     Indication: PAIN
     Dosage: 1 GRAM
     Route: 042
     Dates: start: 20200321, end: 20200326
  3. PANTOPRAZOL (7275A) [Concomitant]
     Active Substance: PANTOPRAZOLE
     Indication: PROPHYLAXIS
     Dosage: 40 MG
     Route: 048
     Dates: start: 20200321, end: 20200326
  4. METILPREDNISOLONA (888A) [Concomitant]
     Active Substance: METHYLPREDNISOLONE
     Indication: SIALOADENITIS
     Dosage: 40 MG
     Route: 042
     Dates: start: 20200321, end: 20200326
  5. PIPERACILINA + TAZOBACTAM [Concomitant]
     Active Substance: PIPERACILLIN SODIUM\TAZOBACTAM SODIUM
     Indication: PROPHYLAXIS
     Dosage: 4 GRAM
     Route: 042
     Dates: start: 20200326, end: 20200327
  6. AMOXICILINA + AIDO CLAVULAICO [Concomitant]
     Indication: SIALOADENITIS
     Dosage: 2 GRAM
     Route: 042
     Dates: start: 20200321, end: 20200326
  7. DIGOXINA (770A) [Suspect]
     Active Substance: DIGOXIN
     Indication: TACHYCARDIA
     Route: 042
     Dates: start: 20200326, end: 20200326
  8. NITROGLICERINA (1037A) [Suspect]
     Active Substance: NITROGLYCERIN
     Dosage: 5 MG
     Route: 061
     Dates: start: 20200324, end: 20200326
  9. HIDROXICLOROQUINA SULFATO (2143SU) [Suspect]
     Active Substance: HYDROXYCHLOROQUINE SULFATE
     Indication: COVID-19 PNEUMONIA
     Dosage: 400 MG
     Route: 048
     Dates: start: 20200326, end: 20200326

REACTIONS (4)
  - Coma [Fatal]
  - Hypotension [Fatal]
  - Cardio-respiratory arrest [Fatal]
  - Tachycardia [Fatal]

NARRATIVE: CASE EVENT DATE: 20200327
